FAERS Safety Report 18313983 (Version 4)
Quarter: 2020Q4

REPORT INFORMATION
  Report Type: Report from Study
  Country: CA (occurrence: CA)
  Receive Date: 20200925
  Receipt Date: 20201119
  Transmission Date: 20210113
  Serious: Yes (Hospitalization, Other)
  Sender: FDA-Public Use
  Company Number: CA-JNJFOC-20200930498

PATIENT
  Age: 64 Year
  Sex: Male

DRUGS (1)
  1. REMICADE [Suspect]
     Active Substance: INFLIXIMAB
     Indication: CROHN^S DISEASE
     Route: 042
     Dates: start: 20161104

REACTIONS (8)
  - Gastrointestinal stoma complication [Recovering/Resolving]
  - Intestinal resection [Recovering/Resolving]
  - Renal surgery [Recovering/Resolving]
  - Postoperative abscess [Recovered/Resolved]
  - Lung disorder [Unknown]
  - COVID-19 [Unknown]
  - Haemoglobin decreased [Unknown]
  - Alpha-1 antitrypsin deficiency [Unknown]

NARRATIVE: CASE EVENT DATE: 202009
